FAERS Safety Report 8255511-8 (Version None)
Quarter: 2012Q2

REPORT INFORMATION
  Report Type: 
  Country: None (occurrence: None)
  Receive Date: 20120403
  Receipt Date: 20120329
  Transmission Date: 20120825
  Serious: Yes (Hospitalization, Other)
  Sender: FDA-Public Use
  Company Number: ES-PFIZER INC-2012081151

PATIENT
  Age: 70 Year
  Sex: Male

DRUGS (2)
  1. EPLERENONE [Suspect]
     Indication: HYPERTENSION
     Dosage: 25 MG, 1X/DAY
     Route: 048
     Dates: start: 20111201, end: 20120118
  2. ENALAPRIL [Suspect]
     Indication: HYPERTENSION
     Dosage: UNK
     Route: 048
     Dates: start: 20060101, end: 20120118

REACTIONS (4)
  - RENAL FAILURE ACUTE [None]
  - HYPERKALAEMIA [None]
  - NEPHROANGIOSCLEROSIS [None]
  - DIARRHOEA [None]
